FAERS Safety Report 17842565 (Version 1)
Quarter: 2020Q2

REPORT INFORMATION
  Report Type: Spontaneous
  Country: CA (occurrence: CA)
  Receive Date: 20200529
  Receipt Date: 20200529
  Transmission Date: 20200714
  Serious: Yes (Other)
  Sender: FDA-Public Use
  Company Number: CA-BAXTER-2020BAX011084

PATIENT
  Sex: Female

DRUGS (5)
  1. ADRIAMYCIN [Suspect]
     Active Substance: DOXORUBICIN HYDROCHLORIDE
     Indication: BREAST CANCER
     Dosage: DOSAGE FORM: NOT SPECIFIED
     Route: 042
  2. PROCYTOX (CYCLOPHOSPHAMIDE) 2000MG/VIAL [Suspect]
     Active Substance: CYCLOPHOSPHAMIDE
     Indication: BREAST CANCER
     Dosage: DOSAGE FORM: NOT SPECIFIED
     Route: 042
  3. PERJETA [Suspect]
     Active Substance: PERTUZUMAB
     Indication: BREAST CANCER
     Dosage: 14 ML VIAL CONCENTRATE SOL.; DOSAGE FORM: SOLUTION INTRAVENOUS
     Route: 042
  4. TRASTUZUMAB. [Suspect]
     Active Substance: TRASTUZUMAB
     Indication: BREAST CANCER
     Route: 042
  5. PACLITAXEL. [Suspect]
     Active Substance: PACLITAXEL
     Indication: BREAST CANCER
     Dosage: DOSAGE FORM: LIQUID INTRAVENOUS
     Route: 042

REACTIONS (2)
  - Haemorrhoids [Recovered/Resolved]
  - Diarrhoea haemorrhagic [Recovered/Resolved]
